FAERS Safety Report 20330141 (Version 2)
Quarter: 2022Q1

REPORT INFORMATION
  Report Type: Report from Study
  Country: US (occurrence: US)
  Receive Date: 20220113
  Receipt Date: 20220321
  Transmission Date: 20220423
  Serious: Yes (Hospitalization, Other)
  Sender: FDA-Public Use
  Company Number: US-ABBVIE-21K-163-4123744-00

PATIENT
  Sex: Female
  Weight: 54.480 kg

DRUGS (9)
  1. RINVOQ [Suspect]
     Active Substance: UPADACITINIB
     Indication: Rheumatoid arthritis
     Route: 048
     Dates: start: 202001, end: 20211121
  2. RINVOQ [Suspect]
     Active Substance: UPADACITINIB
     Route: 048
     Dates: start: 20211201, end: 20211212
  3. RINVOQ [Suspect]
     Active Substance: UPADACITINIB
     Route: 048
     Dates: start: 20220102, end: 20220131
  4. RINVOQ [Suspect]
     Active Substance: UPADACITINIB
     Route: 048
     Dates: start: 20220210, end: 20220307
  5. METHOTREXATE [Concomitant]
     Active Substance: METHOTREXATE
     Indication: Rheumatoid arthritis
  6. FOLIC ACID [Concomitant]
     Active Substance: FOLIC ACID
     Indication: Product used for unknown indication
  7. PLAQUENIL [Concomitant]
     Active Substance: HYDROXYCHLOROQUINE SULFATE
     Indication: Rheumatoid arthritis
  8. VITAMIN D [Concomitant]
     Active Substance: VITAMIN D NOS
     Indication: Supplementation therapy
  9. PROLIA [Concomitant]
     Active Substance: DENOSUMAB
     Indication: Osteoporosis
     Dates: start: 202109

REACTIONS (13)
  - Open fracture [Recovering/Resolving]
  - Asthenia [Recovered/Resolved]
  - COVID-19 [Recovered/Resolved]
  - Postoperative wound infection [Recovering/Resolving]
  - Blood potassium decreased [Recovered/Resolved]
  - Incision site erythema [Not Recovered/Not Resolved]
  - Purulent discharge [Recovered/Resolved]
  - Postoperative wound infection [Unknown]
  - Joint swelling [Recovering/Resolving]
  - Feeling hot [Recovering/Resolving]
  - Gastrointestinal disorder [Unknown]
  - Wound infection [Recovering/Resolving]
  - Joint injury [Unknown]

NARRATIVE: CASE EVENT DATE: 20210101
